FAERS Safety Report 8373183-9 (Version None)
Quarter: 2012Q2

REPORT INFORMATION
  Report Type: 
  Country: None (occurrence: None)
  Receive Date: 20120521
  Receipt Date: 20120516
  Transmission Date: 20120825
  Serious: Yes (Other)
  Sender: FDA-Public Use
  Company Number: JP-PFIZER INC-2012088512

PATIENT
  Age: 87 Year
  Sex: Male

DRUGS (4)
  1. LYRICA [Suspect]
     Indication: NEURALGIA
     Dosage: 25 MG, 1X/DAY
     Route: 048
     Dates: start: 20120228, end: 20120305
  2. LYRICA [Suspect]
     Dosage: 75 MG, 2X/DAY
     Route: 048
     Dates: start: 20120313, end: 20120320
  3. LYRICA [Suspect]
     Indication: CERVICAL MYELOPATHY
     Dosage: 50 MG, 2X/DAY
     Route: 048
     Dates: start: 20120306, end: 20120312
  4. LYRICA [Suspect]
     Dosage: 100 MG, 2X/DAY
     Route: 048
     Dates: start: 20120321, end: 20120327

REACTIONS (1)
  - RETINAL HAEMORRHAGE [None]
